FAERS Safety Report 23512877 (Version 1)
Quarter: 2024Q1

REPORT INFORMATION
  Report Type: Spontaneous
  Country: US (occurrence: US)
  Receive Date: 20240212
  Receipt Date: 20240212
  Transmission Date: 20240410
  Serious: No
  Sender: FDA-Public Use
  Company Number: US-AERIE PHARMACEUTICALS-US-2023-000065

PATIENT
  Age: 71 Year
  Sex: Female
  Weight: 131 kg

DRUGS (1)
  1. RHOPRESSA [Suspect]
     Active Substance: NETARSUDIL MESYLATE
     Indication: Glaucoma
     Dosage: 1 DRP, OU, QHS (DROP (1/12 MILLILITRE))
     Route: 047
     Dates: start: 20230302

REACTIONS (1)
  - Conjunctival hyperaemia [Not Recovered/Not Resolved]

NARRATIVE: CASE EVENT DATE: 20230303
